FAERS Safety Report 6532754-2 (Version None)
Quarter: 2010Q1

REPORT INFORMATION
  Report Type: 
  Country: None (occurrence: None)
  Receive Date: 20100111
  Receipt Date: 20091229
  Transmission Date: 20100710
  Serious: Yes (Hospitalization)
  Sender: FDA-Public Use
  Company Number: PHHY2009AR59378

PATIENT
  Age: 66 Year
  Sex: Male

DRUGS (1)
  1. ACLASTA [Suspect]
     Indication: OSTEITIS DEFORMANS
     Dosage: 5 ML, UNK
     Route: 042
     Dates: start: 20091217

REACTIONS (4)
  - ASTHENIA [None]
  - HEPATIC FUNCTION ABNORMAL [None]
  - MYALGIA [None]
  - PYREXIA [None]
